FAERS Safety Report 17354905 (Version 6)
Quarter: 2022Q2

REPORT INFORMATION
  Report Type: Spontaneous
  Country: US (occurrence: US)
  Receive Date: 20200131
  Receipt Date: 20220511
  Transmission Date: 20220721
  Serious: No
  Sender: FDA-Public Use
  Company Number: US-PFIZER INC-2020040326

PATIENT
  Age: 43 Year
  Sex: Male
  Weight: 83.9 kg

DRUGS (6)
  1. RAPAMUNE [Suspect]
     Active Substance: SIROLIMUS
     Indication: Liver transplant
     Dosage: 1 MG, DAILY
     Dates: start: 200603
  2. RAPAMUNE [Suspect]
     Active Substance: SIROLIMUS
     Indication: Hepatic cancer
     Dosage: 1 MG, ALTERNATE DAY (1 TAB (1 MG) EVERY OTHER DAY)
     Route: 048
     Dates: start: 20160323
  3. LEVOTHYROXINE [Concomitant]
     Active Substance: LEVOTHYROXINE
     Indication: Thyroid disorder
     Dosage: 75 UG, 1X/DAY
     Route: 048
     Dates: start: 200603
  4. METFORMIN HYDROCHLORIDE [Concomitant]
     Active Substance: METFORMIN HYDROCHLORIDE
     Indication: Blood glucose abnormal
     Dosage: 500 MG, DAILY
     Route: 048
     Dates: start: 200603
  5. PROGRAF [Concomitant]
     Active Substance: TACROLIMUS
     Dosage: 4 PROGRAF, DAILY
     Dates: start: 200603
  6. INSULIN NOS [Concomitant]
     Active Substance: INSULIN NOS
     Indication: Blood glucose abnormal
     Dosage: UNK
     Dates: start: 200603

REACTIONS (2)
  - Off label use [Unknown]
  - Glycosylated haemoglobin increased [Recovered/Resolved]

NARRATIVE: CASE EVENT DATE: 20060301
